FAERS Safety Report 24466445 (Version 1)
Quarter: 2024Q4

REPORT INFORMATION
  Report Type: Spontaneous
  Country: GB (occurrence: GB)
  Receive Date: 20241018
  Receipt Date: 20241018
  Transmission Date: 20250115
  Serious: Yes (Other)
  Sender: TEVA
  Company Number: GB-MHRA-TPP36029686C9499877YC1728463161593

PATIENT
  Age: 33 Year
  Sex: Male
  Weight: 88 kg

DRUGS (5)
  1. MONTELUKAST [Suspect]
     Active Substance: MONTELUKAST
     Indication: Ill-defined disorder
     Route: 065
     Dates: start: 20240910
  2. SERTRALINE [Concomitant]
     Active Substance: SERTRALINE HYDROCHLORIDE
     Indication: Ill-defined disorder
     Dosage: ONE DAILY
     Route: 065
     Dates: start: 20220121
  3. ALBUTEROL [Concomitant]
     Active Substance: ALBUTEROL
     Indication: Ill-defined disorder
     Dosage: 1 TO 2 PUFFS UP TO FOUR TIMES DAILY AS REQUIRED
     Route: 065
     Dates: start: 20240627
  4. BECLOMETHASONE\FORMOTEROL [Concomitant]
     Active Substance: BECLOMETHASONE\FORMOTEROL
     Indication: Ill-defined disorder
     Dosage: INHALE TWO PUFFS SLOW AND STEADY, TWICE DAILY V...
     Route: 065
     Dates: start: 20240911
  5. BECLOMETHASONE DIPROPIONATE\FORMOTEROL FUMARATE [Concomitant]
     Active Substance: BECLOMETHASONE DIPROPIONATE\FORMOTEROL FUMARATE
     Indication: Ill-defined disorder
     Dosage: INHALE TWO PUFFS SLOW AND STEADY, TWICE DAILY V...
     Route: 065
     Dates: start: 20240604, end: 20240911

REACTIONS (2)
  - Suicidal ideation [Unknown]
  - Depressed mood [Recovering/Resolving]
